FAERS Safety Report 16804891 (Version 1)
Quarter: 2019Q4

REPORT INFORMATION
  Report Type: Spontaneous
  Country: US (occurrence: US)
  Receive Date: 20190913
  Receipt Date: 20190913
  Transmission Date: 20200122
  Serious: Yes (Hospitalization)
  Sender: FDA-Public Use
  Company Number: None

PATIENT
  Age: 20 Year
  Sex: Male
  Weight: 69 kg

DRUGS (1)
  1. THC OIL [Suspect]
     Active Substance: HERBALS

REACTIONS (2)
  - Lung infiltration [None]
  - Pneumonia [None]

NARRATIVE: CASE EVENT DATE: 20190912
